FAERS Safety Report 9248405 (Version 1)
Quarter: 2013Q1

REPORT INFORMATION
  Report Type: Spontaneous
  Country: US (occurrence: None)
  Receive Date: 20130305
  Receipt Date: 20130305
  Transmission Date: 20140127
  Serious: Yes (Other)
  Sender: FDA-Public Use
  Company Number: 163-21880-12092101

PATIENT
  Age: 66 Year
  Sex: Female

DRUGS (13)
  1. REVLIMID [Suspect]
     Indication: PLASMA CELL MYELOMA
     Dosage: 11/2008 - TEMPORARILY INTERRUPTED?25 MG, 21 IN 28 D, PO
     Route: 048
     Dates: start: 200811
  2. FENTANYL (FENTANYL) [Concomitant]
  3. VICDODIN (VICODIN) [Concomitant]
  4. TEMAZEPAM (TEMAZEPAM) [Concomitant]
  5. SPIRONOLACTONE (SPIRONOLACTONE) [Concomitant]
  6. SINGULAIR [Concomitant]
  7. REQUIP (ROPIIROLE HYDROCHLORIDE) [Concomitant]
  8. METOPROLOL(METOPROLOLO) [Concomitant]
  9. LYRICA (PREGABALIN) [Concomitant]
  10. LEXAPRO (ESCIALOPRAM OXALATE) [Concomitant]
  11. HCTZ (HYRODCHLOROTHIAZIDE) [Concomitant]
  12. ALBUTERO (SALBUTAMOL) [Concomitant]
  13. ADAVIR (SERETIDE MITE) [Concomitant]

REACTIONS (1)
  - Blood creatinine increased [None]
